FAERS Safety Report 4580391-1 (Version None)
Quarter: 2005Q1

REPORT INFORMATION
  Report Type: 
  Country: None (occurrence: None)
  Receive Date: 20050214
  Receipt Date: 20040109
  Transmission Date: 20050727
  Serious: No
  Sender: FDA-Public Use
  Company Number: US-GLAXOSMITHKLINE-A0492685A

PATIENT
  Age: 11 Year
  Sex: Female
  Weight: 39.1 kg

DRUGS (3)
  1. LAMICTAL [Suspect]
     Indication: BIPOLAR DISORDER
     Dosage: 25MG PER DAY
     Route: 048
     Dates: start: 20031216, end: 20031226
  2. ZOLOFT [Concomitant]
     Indication: DEPRESSION
     Dosage: 50MG VARIABLE DOSE
     Route: 048
     Dates: start: 20020926
  3. RISPERDAL [Concomitant]
     Indication: BIPOLAR DISORDER
     Route: 048
     Dates: start: 20020926

REACTIONS (2)
  - PYREXIA [None]
  - RASH [None]
